FAERS Safety Report 23303660 (Version 5)
Quarter: 2025Q2

REPORT INFORMATION
  Report Type: Spontaneous
  Country: US (occurrence: US)
  Receive Date: 20231215
  Receipt Date: 20250620
  Transmission Date: 20250717
  Serious: Yes (Hospitalization, Other)
  Sender: ORGANON
  Company Number: US-009507513-2311USA009696

PATIENT
  Age: 82 Year
  Sex: Female
  Weight: 59.42 kg

DRUGS (17)
  1. ZOCOR [Suspect]
     Active Substance: SIMVASTATIN
     Indication: Blood cholesterol
     Dosage: 40 MILLIGRAM, DAILY
     Route: 048
     Dates: start: 20181120, end: 20231117
  2. ZOCOR [Suspect]
     Active Substance: SIMVASTATIN
     Route: 048
  3. VERICIGUAT HYDROCHLORIDE [Suspect]
     Active Substance: VERICIGUAT HYDROCHLORIDE
     Indication: Heart failure with reduced ejection fraction
     Dosage: 2.5 MILLIGRAM, DAILY (QD)
     Route: 048
     Dates: start: 20230919, end: 20231003
  4. VERICIGUAT HYDROCHLORIDE [Suspect]
     Active Substance: VERICIGUAT HYDROCHLORIDE
     Dosage: 5 MILLIGRAM, QD
     Route: 048
     Dates: start: 20231004, end: 20231018
  5. VERICIGUAT HYDROCHLORIDE [Suspect]
     Active Substance: VERICIGUAT HYDROCHLORIDE
     Dosage: 10 MILLIGRAM, QD
     Route: 048
     Dates: start: 20231019, end: 20231117
  6. METOPROLOL [Suspect]
     Active Substance: METOPROLOL
     Indication: Cardiac failure congestive
     Dosage: 25 MILLIGRAM, QD
     Route: 048
     Dates: start: 20211027
  7. ALBUTEROL SULFATE [Concomitant]
     Active Substance: ALBUTEROL SULFATE
     Indication: Asthma
     Dosage: 2.5 MILLIGRAM, DAILY (ALSO REPORTED PRN); FORMULATION INHALANT
     Route: 055
     Dates: start: 20181025
  8. ALBUTEROL SULFATE [Concomitant]
     Active Substance: ALBUTEROL SULFATE
     Indication: Asthma
     Dosage: 0.09 MG DAILY (ALSO REPORTED PRN); FORMULATION: INHALANT
     Route: 055
     Dates: start: 20181025
  9. ASPIRIN [Concomitant]
     Active Substance: ASPIRIN
     Indication: Cardiac failure congestive
     Dosage: 81 MILLIGRAM, DAILY
     Route: 048
     Dates: start: 20181120
  10. DIGOXIN [Concomitant]
     Active Substance: DIGOXIN
     Indication: Cardiac failure congestive
     Dosage: 0.125 MILLIGRAM, DAILY
     Route: 048
     Dates: start: 20230808
  11. ENTRESTO [Concomitant]
     Active Substance: SACUBITRIL\VALSARTAN
     Indication: Cardiac failure congestive
     Dosage: 100 MILLIGRAM, BID (100 MG, DAILY)
     Route: 048
     Dates: start: 20181203
  12. FARXIGA [Concomitant]
     Active Substance: DAPAGLIFLOZIN PROPANEDIOL
     Indication: Cardiac failure congestive
     Dosage: 10 MILLIGRAM, DAILY
     Route: 048
     Dates: start: 20220816
  13. FEXOFENADINE [Concomitant]
     Active Substance: FEXOFENADINE HYDROCHLORIDE
     Indication: Seasonal allergy
     Dosage: 180 MILLIGRAM, DAILY
     Route: 048
     Dates: start: 20220822
  14. FUROSEMIDE [Concomitant]
     Active Substance: FUROSEMIDE
     Indication: Polyuria
     Dosage: 40 MILLIGRAM, DAILY
     Route: 048
     Dates: start: 20181120
  15. LEVOCETIRIZINE [Concomitant]
     Active Substance: LEVOCETIRIZINE
     Indication: Seasonal allergy
     Dosage: 5 MILLIGRAM, DAILY, PRN
     Route: 048
     Dates: start: 20181120
  16. LEVOTHYROXINE [Concomitant]
     Active Substance: LEVOTHYROXINE
     Indication: Thyroid disorder
     Dosage: 0.125 MILLIGRAM, DAILY
     Route: 048
     Dates: start: 20181120
  17. SPIRONOLACTONE [Concomitant]
     Active Substance: SPIRONOLACTONE
     Indication: Cardiac failure congestive
     Dosage: 25 MILLIGRAM, DAILY
     Route: 048
     Dates: start: 20190401

REACTIONS (4)
  - Atrial fibrillation [Not Recovered/Not Resolved]
  - Cardiac failure [Unknown]
  - Cardiac failure [Unknown]
  - Chronic obstructive pulmonary disease [Not Recovered/Not Resolved]

NARRATIVE: CASE EVENT DATE: 20210101
